FAERS Safety Report 6410054-9 (Version None)
Quarter: 2009Q4

REPORT INFORMATION
  Report Type: 
  Country: None (occurrence: None)
  Receive Date: 20091020
  Receipt Date: 20091020
  Transmission Date: 20100525
  Serious: No
  Sender: FDA-Public Use
  Company Number: None

PATIENT
  Sex: Female

DRUGS (6)
  1. FLUOXETINE [Suspect]
     Indication: DEPRESSION
     Dosage: 10MG Q AM PO
     Route: 048
     Dates: start: 20090908
  2. XANAX [Concomitant]
  3. FLOVENT [Concomitant]
  4. ACCOLASE [Concomitant]
  5. NEXUM [Concomitant]
  6. ALBUTEROL [Concomitant]

REACTIONS (3)
  - HEADACHE [None]
  - NAUSEA [None]
  - VOMITING [None]
